FAERS Safety Report 8025401-4 (Version None)
Quarter: 2011Q4

REPORT INFORMATION
  Report Type: 
  Country: None (occurrence: None)
  Receive Date: 20111130
  Receipt Date: 20110824
  Transmission Date: 20120403
  Serious: Yes (Hospitalization)
  Sender: FDA-Public Use
  Company Number: 2011004350

PATIENT
  Age: 80 Year
  Sex: Female

DRUGS (2)
  1. ATRACURIUM BESYLATE [Concomitant]
  2. TRISENOX [Suspect]
     Indication: ACUTE PROMYELOCYTIC LEUKAEMIA
     Dosage: INTRAVENOUS (NOT OTHERWISE SPECIFIED)
     Route: 042
     Dates: start: 20110727, end: 20110808

REACTIONS (4)
  - TACHYCARDIA [None]
  - ACUTE PROMYELOCYTIC LEUKAEMIA DIFFERENTIATION SYNDROME [None]
  - HEART RATE IRREGULAR [None]
  - ATRIAL FLUTTER [None]
